FAERS Safety Report 7628175-1 (Version None)
Quarter: 2011Q3

REPORT INFORMATION
  Report Type: 
  Country: None (occurrence: None)
  Receive Date: 20110715
  Receipt Date: 20110715
  Transmission Date: 20111222
  Serious: Yes (Hospitalization, Other)
  Sender: FDA-Public Use
  Company Number: None

PATIENT
  Age: 26 Year
  Sex: Female
  Weight: 81.6475 kg

DRUGS (1)
  1. ZOLPIDEM TARTRATE [Suspect]
     Indication: SLEEP DISORDER
     Dosage: 2 AT BEDTIME PO
     Route: 048
     Dates: start: 20110604, end: 20110612

REACTIONS (13)
  - PRODUCT SUBSTITUTION ISSUE [None]
  - LETHARGY [None]
  - ABNORMAL BEHAVIOUR [None]
  - ABDOMINAL PAIN UPPER [None]
  - VOMITING [None]
  - SPEECH DISORDER [None]
  - DIARRHOEA [None]
  - DISORIENTATION [None]
  - CONFUSIONAL STATE [None]
  - INCORRECT DOSE ADMINISTERED [None]
  - GAIT DISTURBANCE [None]
  - IRRITABLE BOWEL SYNDROME [None]
  - DRUG EFFECT DECREASED [None]
